FAERS Safety Report 20806952 (Version 2)
Quarter: 2022Q2

REPORT INFORMATION
  Report Type: Spontaneous
  Country: GR (occurrence: GR)
  Receive Date: 20220510
  Receipt Date: 20220517
  Transmission Date: 20220721
  Serious: Yes (Other)
  Sender: FDA-Public Use
  Company Number: GR-GILEAD-2022-0580805

PATIENT
  Age: 47 Year
  Sex: Male

DRUGS (1)
  1. ATRIPLA [Suspect]
     Active Substance: EFAVIRENZ\EMTRICITABINE\TENOFOVIR DISOPROXIL FUMARATE
     Indication: HIV infection
     Dosage: UNK
     Route: 065
     Dates: start: 2008

REACTIONS (4)
  - Acute myocardial infarction [Unknown]
  - Erectile dysfunction [Unknown]
  - Osteopenia [Unknown]
  - Emotional distress [Unknown]

NARRATIVE: CASE EVENT DATE: 20150101
